FAERS Safety Report 6872256-7 (Version None)
Quarter: 2010Q3

REPORT INFORMATION
  Report Type: 
  Country: None (occurrence: None)
  Receive Date: 20100723
  Receipt Date: 20100713
  Transmission Date: 20110219
  Serious: Yes (Other)
  Sender: FDA-Public Use
  Company Number: ES-ABBOTT-10P-144-0656603-00

PATIENT
  Age: 55 Year
  Sex: Male

DRUGS (3)
  1. HUMIRA [Suspect]
     Indication: PSORIASIS
     Route: 058
     Dates: start: 20100701
  2. ROXUVASTATINA [Concomitant]
     Indication: HYPERCHOLESTEROLAEMIA
  3. ROXUVASTATINA [Concomitant]
     Indication: DYSLIPIDAEMIA

REACTIONS (4)
  - CENTRAL NERVOUS SYSTEM LESION [None]
  - MUSCULAR WEAKNESS [None]
  - PARAESTHESIA [None]
  - SPINAL COLUMN INJURY [None]
